FAERS Safety Report 8267267-3 (Version None)
Quarter: 2012Q2

REPORT INFORMATION
  Report Type: 
  Country: None (occurrence: None)
  Receive Date: 20120409
  Receipt Date: 20120329
  Transmission Date: 20120825
  Serious: Yes (Hospitalization, Other)
  Sender: FDA-Public Use
  Company Number: US-BAYER-2011-107124

PATIENT
  Age: 16 Year
  Sex: Female
  Weight: 57.596 kg

DRUGS (14)
  1. KAPIDEX [Concomitant]
     Indication: GASTROOESOPHAGEAL REFLUX DISEASE
     Dosage: 300 MG, UNK
     Route: 048
  2. IBUPROFEN [Concomitant]
     Dosage: 200 MG, PRN
     Route: 048
  3. ZITHROMAX [Concomitant]
     Dosage: UNK
     Dates: start: 20091114
  4. YAZ [Suspect]
     Indication: ACNE
     Dosage: UNK
     Dates: start: 20050101, end: 20090101
  5. FIORICET [Concomitant]
     Dosage: UNK
     Dates: start: 20091117
  6. SEASONIQUE [Concomitant]
     Indication: CONTRACEPTION
     Route: 048
  7. ZANTAC [Concomitant]
     Dosage: UNK
     Dates: start: 20100114
  8. AZITHROMYCIN [Concomitant]
     Dosage: 250 MG, UNK
     Dates: start: 20091201
  9. YAZ [Suspect]
  10. NAPROXEN [Concomitant]
     Dosage: 550 MG, UNK
     Dates: start: 20091201
  11. YAZ [Suspect]
     Indication: PREMENSTRUAL SYNDROME
     Dosage: UNK
     Dates: start: 20080101, end: 20090101
  12. TORADOL [Concomitant]
     Dosage: UNK
     Dates: start: 20091209
  13. NEXIUM [Concomitant]
     Dosage: 40 MG, UNK
     Dates: start: 20100114
  14. BUT 50/APAP [Concomitant]
     Dosage: UNK
     Dates: start: 20091101

REACTIONS (4)
  - INJURY [None]
  - BILIARY DYSKINESIA [None]
  - GALLBLADDER DISORDER [None]
  - PAIN [None]
